FAERS Safety Report 8408336-4 (Version None)
Quarter: 2012Q2

REPORT INFORMATION
  Report Type: 
  Country: None (occurrence: None)
  Receive Date: 20120531
  Receipt Date: 20120531
  Transmission Date: 20120825
  Serious: Yes (Death)
  Sender: FDA-Public Use
  Company Number: None

PATIENT
  Age: 29 Year
  Sex: Female
  Weight: 88.7 kg

DRUGS (1)
  1. BELIMUMAB [Suspect]
     Indication: SYSTEMIC LUPUS ERYTHEMATOSUS
     Dosage: 10 MG/KG MONTHLY INJECTION
     Dates: start: 20120101, end: 20120401

REACTIONS (15)
  - FEELING COLD [None]
  - COMPARTMENT SYNDROME [None]
  - CONTINUOUS HAEMODIAFILTRATION [None]
  - INFECTION IN AN IMMUNOCOMPROMISED HOST [None]
  - LUPUS MYOCARDITIS [None]
  - MULTI-ORGAN FAILURE [None]
  - CARDIAC FAILURE ACUTE [None]
  - FATIGUE [None]
  - RENAL FAILURE ACUTE [None]
  - ORTHOPNOEA [None]
  - PERIPHERAL ISCHAEMIA [None]
  - HYPERKALAEMIA [None]
  - RHABDOMYOLYSIS [None]
  - TOXICITY TO VARIOUS AGENTS [None]
  - CARDIOGENIC SHOCK [None]
